FAERS Safety Report 7875591-9 (Version None)
Quarter: 2011Q4

REPORT INFORMATION
  Report Type: 
  Country: None (occurrence: None)
  Receive Date: 20111031
  Receipt Date: 20111017
  Transmission Date: 20120403
  Serious: Yes (Death)
  Sender: FDA-Public Use
  Company Number: US-ELI_LILLY_AND_COMPANY-US201110000468

PATIENT
  Sex: Female
  Weight: 41.27 kg

DRUGS (8)
  1. LISINOPRIL [Concomitant]
  2. DIGOXIN [Concomitant]
  3. WARFARIN SODIUM [Concomitant]
  4. LASIX [Concomitant]
  5. POTASSIUM [Concomitant]
  6. VITAMIN B-12 [Concomitant]
  7. FORTEO [Suspect]
     Indication: OSTEOPOROSIS
     Dosage: UNK
     Route: 058
     Dates: start: 20110105
  8. CALCIUM [Concomitant]

REACTIONS (1)
  - CONGESTIVE CARDIOMYOPATHY [None]
